FAERS Safety Report 8554949-9 (Version None)
Quarter: 2012Q3

REPORT INFORMATION
  Report Type: 
  Country: None (occurrence: None)
  Receive Date: 20120725
  Receipt Date: 20120725
  Transmission Date: 20120928
  Serious: Yes (Other)
  Sender: FDA-Public Use
  Company Number: None

PATIENT
  Sex: Female
  Weight: 53.978 kg

DRUGS (1)
  1. ZEOSA CHEWABLE TABLETS [Suspect]
     Dosage: 35 MCG-0.4 MG ONCE PO QD PATIENT HAS BEEN ON ZEOSA PAST 3-4 MONTH
     Route: 048
     Dates: start: 20110901

REACTIONS (3)
  - METRORRHAGIA [None]
  - DRUG INEFFECTIVE [None]
  - PRODUCT SUBSTITUTION ISSUE [None]
